FAERS Safety Report 10021379 (Version 1)
Quarter: 2014Q1

REPORT INFORMATION
  Report Type: Spontaneous
  Country: US (occurrence: None)
  Receive Date: 20140318
  Receipt Date: 20140318
  Transmission Date: 20141002
  Serious: Yes (Other)
  Sender: FDA-Public Use
  Company Number: None

PATIENT
  Age: 62 Year
  Sex: Male

DRUGS (14)
  1. SOVALDI 400MG GILEAD SCIENCES [Suspect]
     Indication: HEPATITIS C
     Route: 048
     Dates: start: 20140110
  2. OXYCODONE [Concomitant]
  3. TRAZODONE [Concomitant]
  4. LIDOCAINE [Concomitant]
  5. OXYCONTIN [Concomitant]
  6. CLONIDINE [Concomitant]
  7. TRAMADOL [Concomitant]
  8. OMEPRAZOLE [Concomitant]
  9. HEAD + SHOULDERS [Concomitant]
  10. NADOLOL [Concomitant]
  11. LEVOTHYROXINE [Concomitant]
  12. PEG-3350 + ELECTROLYTES [Concomitant]
  13. GLYSIO [Concomitant]
  14. PANTOPRAZOLE [Concomitant]

REACTIONS (1)
  - Headache [None]
